FAERS Safety Report 9014724 (Version 1)
Quarter: 2013Q1

REPORT INFORMATION
  Report Type: Spontaneous
  Country: GB (occurrence: GB)
  Receive Date: 20130115
  Receipt Date: 20130115
  Transmission Date: 20140127
  Serious: Yes (Hospitalization, Other)
  Sender: FDA-Public Use
  Company Number: GB-PFIZER INC-2013015879

PATIENT
  Age: 28 Year
  Sex: Male
  Weight: 112 kg

DRUGS (2)
  1. PREGABALIN [Suspect]
     Route: 045
     Dates: start: 20121221, end: 20121221
  2. METHADONE HYDROCHLORIDE [Concomitant]

REACTIONS (3)
  - Syncope [Recovered/Resolved]
  - Drug abuse [Unknown]
  - Convulsion [Unknown]
